FAERS Safety Report 9268940 (Version 1)
Quarter: 2013Q2

REPORT INFORMATION
  Report Type: Spontaneous
  Country: IT (occurrence: IT)
  Receive Date: 20130503
  Receipt Date: 20130503
  Transmission Date: 20140414
  Serious: Yes (Hospitalization)
  Sender: FDA-Public Use
  Company Number: IT-PFIZER INC-2013138526

PATIENT
  Age: 50 Year
  Sex: Female

DRUGS (3)
  1. IBUPROFEN [Suspect]
     Dosage: 400 MG, 1X/DAY
     Route: 048
     Dates: start: 20130312, end: 20130312
  2. COUMADIN [Concomitant]
     Indication: INFARCTION
     Dosage: 5 MG, UNK
     Route: 065
  3. COUMADIN [Concomitant]
     Indication: PULMONARY EMBOLISM

REACTIONS (4)
  - Hypersensitivity [Recovered/Resolved]
  - Cough [Recovered/Resolved]
  - Tachycardia [Recovered/Resolved]
  - Dyspnoea [Recovered/Resolved]
